FAERS Safety Report 6440526-2 (Version None)
Quarter: 2009Q4

REPORT INFORMATION
  Report Type: 
  Country: None (occurrence: None)
  Receive Date: 20091113
  Receipt Date: 20091102
  Transmission Date: 20100525
  Serious: Yes (Hospitalization)
  Sender: FDA-Public Use
  Company Number: PHHY2009CA47862

PATIENT
  Sex: Male

DRUGS (1)
  1. DIOVAN [Suspect]
     Dosage: 1 TABLET (80 MG) DAILY
     Route: 048

REACTIONS (3)
  - ASTHENIA [None]
  - CARDIAC DISORDER [None]
  - DIZZINESS [None]
